FAERS Safety Report 5237696-0 (Version None)
Quarter: 2007Q1

REPORT INFORMATION
  Report Type: 
  Country: None (occurrence: None)
  Receive Date: 20070214
  Receipt Date: 20070207
  Transmission Date: 20070707
  Serious: Yes (Other)
  Sender: FDA-Public Use
  Company Number: GBWYE566907FEB07

PATIENT
  Sex: Female

DRUGS (1)
  1. ENBREL [Suspect]
     Indication: DRUG USE FOR UNKNOWN INDICATION
     Route: 058
     Dates: start: 20061001, end: 20070128

REACTIONS (3)
  - DYSPNOEA [None]
  - LOSS OF CONSCIOUSNESS [None]
  - RASH [None]
